FAERS Safety Report 4989227-8 (Version None)
Quarter: 2006Q2

REPORT INFORMATION
  Report Type: 
  Country: None (occurrence: None)
  Receive Date: 20060425
  Receipt Date: 20060410
  Transmission Date: 20061013
  Serious: Yes (Hospitalization, Other)
  Sender: FDA-Public Use
  Company Number: 2006049798

PATIENT
  Age: 86 Year
  Sex: Male
  Weight: 76.2043 kg

DRUGS (3)
  1. DETROL LA [Suspect]
     Indication: URINARY INCONTINENCE
     Dosage: 4 MG (4 MG, 1 IN 1 D), ORAL
     Route: 048
     Dates: start: 20060329
  2. PREDNISONE TAB [Suspect]
     Indication: POLYMYALGIA
  3. PLAVIX [Concomitant]

REACTIONS (6)
  - BLOOD CHOLESTEROL INCREASED [None]
  - BLOOD PRESSURE SYSTOLIC INCREASED [None]
  - DIARRHOEA [None]
  - MYOCARDIAL INFARCTION [None]
  - PROSTATECTOMY [None]
  - URINARY INCONTINENCE [None]
